FAERS Safety Report 5482066-3 (Version None)
Quarter: 2007Q4

REPORT INFORMATION
  Report Type: 
  Country: None (occurrence: None)
  Receive Date: 20071005
  Receipt Date: 20070924
  Transmission Date: 20080405
  Serious: Yes (Death)
  Sender: FDA-Public Use
  Company Number: B0489465A

PATIENT
  Age: 60 Year
  Sex: 0

DRUGS (1)
  1. FLUTICASONE PROPIONATE+SALMETEROL XINAFOATE HFA-CFC FREE INH (FLUTICAS [Suspect]
     Dosage: INHALED
     Route: 055

REACTIONS (1)
  - MYOCARDIAL INFARCTION [None]
